FAERS Safety Report 23027518 (Version 1)
Quarter: 2023Q4

REPORT INFORMATION
  Report Type: Spontaneous
  Country: None (occurrence: PT)
  Receive Date: 20231004
  Receipt Date: 20231004
  Transmission Date: 20240110
  Serious: Yes (Death, Other)
  Sender: FDA-Public Use
  Company Number: PT-B.Braun Medical Inc.-2146646

PATIENT

DRUGS (7)
  1. ACETAMINOPHEN [Suspect]
     Active Substance: ACETAMINOPHEN
  2. TRAMADOL HYDROCHLORIDE [Suspect]
     Active Substance: TRAMADOL HYDROCHLORIDE
  3. XYZAL [Suspect]
     Active Substance: LEVOCETIRIZINE DIHYDROCHLORIDE
  4. TAMSULOSIN HYDROCHLORIDE [Suspect]
     Active Substance: TAMSULOSIN HYDROCHLORIDE
  5. ASPIRIN [Suspect]
     Active Substance: ASPIRIN
  6. HYDROCHLOROTHIAZIDE [Suspect]
     Active Substance: HYDROCHLOROTHIAZIDE
  7. ENOXAPARIN SODIUM [Suspect]
     Active Substance: ENOXAPARIN SODIUM

REACTIONS (5)
  - Headache [None]
  - Altered state of consciousness [None]
  - Haemorrhagic stroke [None]
  - Sepsis [None]
  - Cardio-respiratory arrest [None]
